FAERS Safety Report 11217916 (Version 1)
Quarter: 2015Q2

REPORT INFORMATION
  Report Type: Report from Study
  Country: IN (occurrence: IN)
  Receive Date: 20150625
  Receipt Date: 20150625
  Transmission Date: 20150821
  Serious: Yes (Death, Hospitalization)
  Sender: FDA-Public Use
  Company Number: PHHY2015IN076381

PATIENT
  Age: 61 Year
  Sex: Female

DRUGS (1)
  1. AFINITOR [Suspect]
     Active Substance: EVEROLIMUS
     Indication: RENAL CELL CARCINOMA
     Dosage: 10 MG, QD
     Route: 048
     Dates: start: 20150511, end: 20150617

REACTIONS (3)
  - Jaundice [Fatal]
  - Yellow skin [Fatal]
  - Ocular icterus [Fatal]

NARRATIVE: CASE EVENT DATE: 20150616
